FAERS Safety Report 13362078 (Version 1)
Quarter: 2017Q1

REPORT INFORMATION
  Report Type: Spontaneous
  Country: IN (occurrence: IN)
  Receive Date: 20170323
  Receipt Date: 20170323
  Transmission Date: 20170429
  Serious: Yes (Life-Threatening, Hospitalization, Other)
  Sender: FDA-Public Use
  Company Number: IN-SUN PHARMACEUTICAL INDUSTRIES LTD-2016R1-110650

PATIENT
  Age: 25 Year
  Sex: Male
  Weight: 62 kg

DRUGS (2)
  1. RIFAMPICIN [Suspect]
     Active Substance: RIFAMPIN
     Indication: BONE TUBERCULOSIS
     Dosage: UNK
     Route: 048
  2. ISONIAZID. [Suspect]
     Active Substance: ISONIAZID
     Indication: BONE TUBERCULOSIS
     Dosage: UNK
     Route: 048

REACTIONS (11)
  - Coma [Recovering/Resolving]
  - Dyspnoea [Recovering/Resolving]
  - Generalised tonic-clonic seizure [Recovering/Resolving]
  - Rhabdomyolysis [Recovering/Resolving]
  - Vomiting [Recovering/Resolving]
  - Nausea [Recovering/Resolving]
  - Hepatic function abnormal [Recovering/Resolving]
  - Metabolic acidosis [Recovering/Resolving]
  - Toxicity to various agents [Recovering/Resolving]
  - Overdose [Recovering/Resolving]
  - Mental status changes [Recovering/Resolving]

NARRATIVE: CASE EVENT DATE: 20150511
